FAERS Safety Report 10069989 (Version 2)
Quarter: 2014Q2

REPORT INFORMATION
  Report Type: Report from Study
  Country: US (occurrence: US)
  Receive Date: 20140410
  Receipt Date: 20140426
  Transmission Date: 20141212
  Serious: Yes (Hospitalization)
  Sender: FDA-Public Use
  Company Number: US-ROCHE-1378094

PATIENT
  Age: 66 Year
  Sex: Male
  Weight: 101.9 kg

DRUGS (24)
  1. RIBAVIRIN [Suspect]
     Indication: HEPATITIS C
     Dosage: ONGOING
     Route: 048
     Dates: start: 20131113
  2. SOFOSBUVIR [Suspect]
     Indication: HEPATITIS C
     Dosage: ONGOING
     Route: 048
     Dates: start: 20131113
  3. NEUPOGEN [Concomitant]
  4. ARANESP [Concomitant]
  5. PROMACTA [Concomitant]
  6. CALCIUM GLUCONATE [Concomitant]
  7. CIPROFLOXACIN [Concomitant]
  8. FENTANYL [Concomitant]
  9. FUROSEMIDE [Concomitant]
  10. HYDROMORPHONE [Concomitant]
  11. MAGNESIUM OXIDE [Concomitant]
  12. MICONAZOLE [Concomitant]
  13. OMEPRAZOLE [Concomitant]
  14. POTASSIUM CHLORIDE [Concomitant]
  15. SENNA [Concomitant]
  16. SIROLIMUS [Concomitant]
     Route: 065
     Dates: end: 20140403
  17. SPIRONOLACTONE [Concomitant]
  18. TERAZOSIN [Concomitant]
  19. ZOLPIDEM [Concomitant]
  20. ALBUMIN [Concomitant]
     Dosage: ONGOING
     Route: 065
     Dates: start: 20131101
  21. PROMETHAZINE [Concomitant]
     Dosage: ONGOING
     Route: 065
     Dates: start: 20131209
  22. VANCOMYCIN [Concomitant]
     Route: 065
     Dates: start: 20140212, end: 20140213
  23. BACTRIM [Concomitant]
     Route: 065
     Dates: start: 20140214, end: 20140221
  24. PREDNISONE [Concomitant]
     Route: 065
     Dates: start: 20140214, end: 20140222

REACTIONS (1)
  - Atrial fibrillation [Recovered/Resolved]
